FAERS Safety Report 25378277 (Version 2)
Quarter: 2025Q2

REPORT INFORMATION
  Report Type: Spontaneous
  Country: US (occurrence: US)
  Receive Date: 20250530
  Receipt Date: 20250607
  Transmission Date: 20250716
  Serious: Yes (Death, Life-Threatening, Hospitalization)
  Sender: MACLEODS
  Company Number: US-MACLEODS PHARMA-MAC2025053257

PATIENT

DRUGS (29)
  1. PREGABALIN [Suspect]
     Active Substance: PREGABALIN
     Indication: Agitation
     Route: 065
  2. PREGABALIN [Suspect]
     Active Substance: PREGABALIN
     Indication: Pain
  3. PREGABALIN [Suspect]
     Active Substance: PREGABALIN
     Indication: Agitation
  4. PREGABALIN [Suspect]
     Active Substance: PREGABALIN
     Indication: Pain
  5. ISONIAZID [Suspect]
     Active Substance: ISONIAZID
     Indication: Pulmonary tuberculosis
     Route: 065
  6. VALPROATE SODIUM [Suspect]
     Active Substance: VALPROATE SODIUM
     Indication: Sedation
     Dosage: LEVEL OF 68 MCG/ML
     Route: 065
  7. VALPROATE SODIUM [Suspect]
     Active Substance: VALPROATE SODIUM
     Indication: Agitation
  8. LITHIUM [Suspect]
     Active Substance: LITHIUM
     Indication: Agitation
     Route: 065
  9. LITHIUM [Suspect]
     Active Substance: LITHIUM
     Indication: Abnormal behaviour
     Route: 065
  10. LITHIUM [Suspect]
     Active Substance: LITHIUM
     Indication: Aggression
  11. OXYCODONE [Suspect]
     Active Substance: OXYCODONE
     Indication: Agitation
     Route: 065
  12. OXYCODONE [Suspect]
     Active Substance: OXYCODONE
     Indication: Pain
  13. OXYCODONE [Suspect]
     Active Substance: OXYCODONE
     Indication: Agitation
     Route: 065
  14. OXYCODONE [Suspect]
     Active Substance: OXYCODONE
     Indication: Pain
  15. RIFAMPIN [Concomitant]
     Active Substance: RIFAMPIN
     Route: 065
  16. PYRAZINAMIDE [Concomitant]
     Active Substance: PYRAZINAMIDE
     Route: 065
  17. ETHAMBUTOL [Concomitant]
     Active Substance: ETHAMBUTOL HYDROCHLORIDE
     Route: 065
  18. DEXMEDETOMIDINE [Concomitant]
     Active Substance: DEXMEDETOMIDINE
     Indication: Sedative therapy
     Route: 065
  19. PROPOFOL [Concomitant]
     Active Substance: PROPOFOL
     Indication: Sedative therapy
     Route: 065
  20. HYDROMORPHONE [Concomitant]
     Active Substance: HYDROMORPHONE
     Indication: Sedative therapy
     Route: 065
  21. GUANFACINE [Concomitant]
     Active Substance: GUANFACINE
     Route: 065
  22. GUANFACINE [Concomitant]
     Active Substance: GUANFACINE
  23. OLANZAPINE [Concomitant]
     Active Substance: OLANZAPINE
     Route: 065
  24. OLANZAPINE [Concomitant]
     Active Substance: OLANZAPINE
     Indication: Agitation
  25. LORAZEPAM [Concomitant]
     Active Substance: LORAZEPAM
     Route: 065
  26. LORAZEPAM [Concomitant]
     Active Substance: LORAZEPAM
     Dosage: LORAZEPAM SLOWLY REDUCED TO 6 MG/DAY OVER THREE WEEKS.
     Route: 065
  27. HALOPERIDOL [Concomitant]
     Active Substance: HALOPERIDOL
     Indication: Sedation
     Route: 042
  28. HALOPERIDOL [Concomitant]
     Active Substance: HALOPERIDOL
  29. Ramelteon/daridorexant [Concomitant]
     Indication: Sleep disorder
     Route: 065

REACTIONS (3)
  - Pulmonary tuberculosis [Fatal]
  - Disease progression [Fatal]
  - Serotonin syndrome [Not Recovered/Not Resolved]
